FAERS Safety Report 7677551-X (Version None)
Quarter: 2011Q3

REPORT INFORMATION
  Report Type: 
  Country: None (occurrence: None)
  Receive Date: 20110811
  Receipt Date: 20110803
  Transmission Date: 20111222
  Serious: Yes (Other)
  Sender: FDA-Public Use
  Company Number: US-RB-027540-11

PATIENT
  Age: 80 Year
  Sex: Male

DRUGS (1)
  1. DELSYM ADULT GRAPE [Suspect]
     Route: 048

REACTIONS (3)
  - HALLUCINATION [None]
  - INCORRECT DRUG ADMINISTRATION DURATION [None]
  - CONFUSIONAL STATE [None]
